FAERS Safety Report 7518530-2 (Version None)
Quarter: 2011Q2

REPORT INFORMATION
  Report Type: 
  Country: None (occurrence: None)
  Receive Date: 20110601
  Receipt Date: 20110601
  Transmission Date: 20111010
  Serious: Yes (Other)
  Sender: FDA-Public Use
  Company Number: None

PATIENT
  Age: 23 Year
  Sex: Male
  Weight: 77.1115 kg

DRUGS (4)
  1. BENZTROPINE MESYLATE [Concomitant]
  2. PROPRANOLOL [Concomitant]
  3. MODAFINIL [Concomitant]
  4. SEROQUEL [Suspect]
     Indication: SCHIZOPHRENIA
     Dosage: 800 MG ONCE AT BED TIME PO
     Route: 048
     Dates: start: 20080118, end: 20100214

REACTIONS (19)
  - POSTURE ABNORMAL [None]
  - MOBILITY DECREASED [None]
  - SALIVARY HYPERSECRETION [None]
  - HYPERSOMNIA [None]
  - DISCOMFORT [None]
  - PARALYSIS [None]
  - NERVOUS SYSTEM DISORDER [None]
  - PSYCHOTIC DISORDER [None]
  - SLEEP PARALYSIS [None]
  - MUSCLE RIGIDITY [None]
  - MUSCULAR WEAKNESS [None]
  - HYPOTHYROIDISM [None]
  - MUSCLE SPASMS [None]
  - ABASIA [None]
  - SPINAL DISORDER [None]
  - HAEMORRHAGE [None]
  - NAUSEA [None]
  - DIZZINESS [None]
  - ENURESIS [None]
